FAERS Safety Report 24355100 (Version 1)
Quarter: 2024Q3

REPORT INFORMATION
  Report Type: Spontaneous
  Country: US (occurrence: US)
  Receive Date: 20240923
  Receipt Date: 20240923
  Transmission Date: 20241016
  Serious: No
  Sender: ABBVIE
  Company Number: US-ABBVIE-5932173

PATIENT

DRUGS (1)
  1. SKYRIZI [Suspect]
     Active Substance: RISANKIZUMAB-RZAA
     Indication: Product used for unknown indication
     Route: 058
     Dates: start: 20240918

REACTIONS (5)
  - Pain [Unknown]
  - Fatigue [Unknown]
  - Irritability [Unknown]
  - Arthralgia [Recovering/Resolving]
  - Headache [Unknown]

NARRATIVE: CASE EVENT DATE: 20240101
